FAERS Safety Report 26140498 (Version 1)
Quarter: 2025Q4

REPORT INFORMATION
  Report Type: Spontaneous
  Country: US (occurrence: US)
  Receive Date: 20251210
  Receipt Date: 20251210
  Transmission Date: 20260117
  Serious: Yes (Hospitalization)
  Sender: SANOFI AVENTIS
  Company Number: US-SA-2025SA363173

PATIENT
  Age: 66 Year
  Sex: Female

DRUGS (1)
  1. LOVENOX [Suspect]
     Active Substance: ENOXAPARIN SODIUM
     Indication: Embolism venous
     Dosage: 40 MG, QD
     Route: 065
     Dates: start: 19590823

REACTIONS (2)
  - Hospitalisation [Unknown]
  - Haemorrhage [Unknown]
